FAERS Safety Report 17683818 (Version 2)
Quarter: 2020Q2

REPORT INFORMATION
  Report Type: Report from Study
  Country: None (occurrence: BR)
  Receive Date: 20200420
  Receipt Date: 20200608
  Transmission Date: 20200714
  Serious: Yes (Disabling, Other)
  Sender: FDA-Public Use
  Company Number: BR-ABBVIE-20K-020-3367801-00

PATIENT
  Age: 60 Year
  Sex: Female
  Weight: 48 kg

DRUGS (5)
  1. PREDNISONE. [Concomitant]
     Active Substance: PREDNISONE
     Indication: PRODUCT USED FOR UNKNOWN INDICATION
     Dates: start: 2018
  2. COQUETROL [Concomitant]
     Indication: ANTIINFLAMMATORY THERAPY
     Dates: start: 201912
  3. BETAMETHASONE DIPROPIONATE. [Concomitant]
     Active Substance: BETAMETHASONE DIPROPIONATE
     Indication: ARTHROPATHY
  4. BETAMETHASONE DISODIUM PHOSPHATE [Concomitant]
     Indication: ARTHROPATHY
  5. HUMIRA [Suspect]
     Active Substance: ADALIMUMAB
     Indication: RHEUMATOID ARTHRITIS
     Dosage: 1 UNSPECIFIC DOSE
     Route: 058
     Dates: start: 20191018

REACTIONS (13)
  - Nail discolouration [Not Recovered/Not Resolved]
  - Vision blurred [Not Recovered/Not Resolved]
  - Loss of personal independence in daily activities [Unknown]
  - Suicidal ideation [Unknown]
  - Musculoskeletal disorder [Not Recovered/Not Resolved]
  - Mobility decreased [Not Recovered/Not Resolved]
  - Hypophagia [Unknown]
  - Peripheral coldness [Unknown]
  - Crying [Unknown]
  - Insomnia [Unknown]
  - Paralysis [Not Recovered/Not Resolved]
  - Swelling [Not Recovered/Not Resolved]
  - Pain [Not Recovered/Not Resolved]

NARRATIVE: CASE EVENT DATE: 2019
